FAERS Safety Report 13344550 (Version 1)
Quarter: 2017Q1

REPORT INFORMATION
  Report Type: Spontaneous
  Country: US (occurrence: US)
  Receive Date: 20170317
  Receipt Date: 20170317
  Transmission Date: 20170428
  Serious: No
  Sender: FDA-Public Use
  Company Number: US-BIOGEN-2017BI00372161

PATIENT
  Sex: Female

DRUGS (1)
  1. TECFIDERA [Suspect]
     Active Substance: DIMETHYL FUMARATE
     Indication: PRODUCT USED FOR UNKNOWN INDICATION
     Route: 048

REACTIONS (8)
  - Urticaria [Unknown]
  - Swelling face [Unknown]
  - Flushing [Unknown]
  - Dyspnoea [Unknown]
  - Swollen tongue [Unknown]
  - Underdose [Unknown]
  - Constipation [Unknown]
  - Abdominal pain upper [Unknown]
